FAERS Safety Report 6552395-0 (Version None)
Quarter: 2010Q1

REPORT INFORMATION
  Report Type: 
  Country: None (occurrence: None)
  Receive Date: 20100126
  Receipt Date: 20100120
  Transmission Date: 20100710
  Serious: Yes (Other)
  Sender: FDA-Public Use
  Company Number: DE-PFIZER INC-2009307011

PATIENT
  Age: 57 Year
  Sex: Female

DRUGS (1)
  1. CHAMPIX [Suspect]
     Dosage: 0.5 MG, UNK
     Route: 048

REACTIONS (4)
  - BILIARY COLIC [None]
  - DERMATITIS ALLERGIC [None]
  - NAUSEA [None]
  - VOMITING [None]
